FAERS Safety Report 20894206 (Version 1)
Quarter: 2022Q2

REPORT INFORMATION
  Report Type: Spontaneous
  Country: US (occurrence: US)
  Receive Date: 20220531
  Receipt Date: 20220531
  Transmission Date: 20220721
  Serious: Yes (Other)
  Sender: FDA-Public Use
  Company Number: US-BAYER-2022A073420

PATIENT

DRUGS (2)
  1. STIVARGA [Suspect]
     Active Substance: REGORAFENIB
     Dosage: UNK
  2. LONSURF [Suspect]
     Active Substance: TIPIRACIL HYDROCHLORIDE\TRIFLURIDINE
     Dosage: UNK

REACTIONS (8)
  - Anaemia [None]
  - Haemoglobin decreased [None]
  - White blood cell count decreased [None]
  - Neutrophil count decreased [None]
  - Ascites [None]
  - Weight decreased [None]
  - Fatigue [None]
  - Diarrhoea [None]
